FAERS Safety Report 17761513 (Version 1)
Quarter: 2020Q2

REPORT INFORMATION
  Report Type: Spontaneous
  Country: FR (occurrence: FR)
  Receive Date: 20200508
  Receipt Date: 20200508
  Transmission Date: 20200714
  Serious: Yes (Other)
  Sender: FDA-Public Use
  Company Number: FR-SA-2020SA117605

PATIENT
  Age: 49 Year
  Sex: Female
  Weight: 60.5 kg

DRUGS (2)
  1. LOVENOX [Suspect]
     Active Substance: ENOXAPARIN SODIUM
     Indication: THROMBOSIS PROPHYLAXIS
     Dosage: 4000 IU
     Route: 065
     Dates: start: 20181023, end: 20181130
  2. FORTUM [CEFTAZIDIME PENTAHYDRATE] [Suspect]
     Active Substance: CEFTAZIDIME
     Indication: RESPIRATORY TRACT INFECTION
     Dosage: 6 G
     Route: 041
     Dates: start: 20181122, end: 20181128

REACTIONS (1)
  - Stevens-Johnson syndrome [Recovered/Resolved]

NARRATIVE: CASE EVENT DATE: 20181127
